FAERS Safety Report 7732906-X (Version None)
Quarter: 2011Q3

REPORT INFORMATION
  Report Type: 
  Country: None (occurrence: None)
  Receive Date: 20110901
  Receipt Date: 20110822
  Transmission Date: 20111222
  Serious: Yes (Life-Threatening)
  Sender: FDA-Public Use
  Company Number: TCI2011A04193

PATIENT
  Age: 64 Year
  Sex: Male

DRUGS (10)
  1. NEBLIN (METFORMIN HYDROCHLORIDE) [Concomitant]
  2. GLUCOBAY [Concomitant]
  3. AMARYL [Concomitant]
  4. ACTOS [Suspect]
     Indication: DIABETES MELLITUS
     Dosage: 15 MG (15 MG, 1 IN 1 D), PER ORAL
     Route: 048
     Dates: start: 20090120, end: 20090610
  5. COMELIAN (DILAZEP DIHYDROCHLORIDE) [Concomitant]
  6. IRBETAN (IRBESARTAN) [Concomitant]
  7. URALYT (SODIUM CITRATE ACID, POTASSIUM CITRATE) [Concomitant]
  8. ALLOPURINOL [Concomitant]
  9. CRESTOR [Concomitant]
  10. LIVALO [Concomitant]

REACTIONS (4)
  - HAEMATURIA [None]
  - OEDEMA [None]
  - TRANSITIONAL CELL CANCER OF THE RENAL PELVIS AND URETER [None]
  - BLOOD URINE PRESENT [None]
